FAERS Safety Report 21070070 (Version 3)
Quarter: 2022Q3

REPORT INFORMATION
  Report Type: Spontaneous
  Country: JP (occurrence: JP)
  Receive Date: 20220712
  Receipt Date: 20220914
  Transmission Date: 20221026
  Serious: Yes (Death, Life-Threatening, Other)
  Sender: FDA-Public Use
  Company Number: JP-MLMSERVICE-20220630-3640513-1

PATIENT
  Age: 38 Year
  Sex: Female

DRUGS (2)
  1. CLOPIDOGREL BISULFATE [Suspect]
     Active Substance: CLOPIDOGREL BISULFATE
     Indication: Moyamoya disease
     Dosage: 75 MG, QD
     Route: 048
  2. CLOPIDOGREL BISULFATE [Suspect]
     Active Substance: CLOPIDOGREL BISULFATE
     Indication: Cerebral ischaemia

REACTIONS (4)
  - Coma [Fatal]
  - Respiratory arrest [Fatal]
  - Bleeding time prolonged [Fatal]
  - Cerebral haemorrhage [Fatal]
